FAERS Safety Report 5831615-1 (Version None)
Quarter: 2008Q3

REPORT INFORMATION
  Report Type: 
  Country: None (occurrence: None)
  Receive Date: 20080801
  Receipt Date: 20080722
  Transmission Date: 20090109
  Serious: Yes (Other)
  Sender: FDA-Public Use
  Company Number: US-PFIZER INC-2008062954

PATIENT
  Sex: Female
  Weight: 86.2 kg

DRUGS (1)
  1. CHANTIX [Suspect]
     Indication: SMOKING CESSATION THERAPY
     Dates: start: 20050601, end: 20080201

REACTIONS (5)
  - BURNS SECOND DEGREE [None]
  - GINGIVAL BLEEDING [None]
  - PHOTOSENSITIVITY REACTION [None]
  - STRESS [None]
  - SUNBURN [None]
